FAERS Safety Report 9620234 (Version 2)
Quarter: 2013Q4

REPORT INFORMATION
  Report Type: Spontaneous
  Country: None (occurrence: US)
  Receive Date: 20131014
  Receipt Date: 20131014
  Transmission Date: 20140711
  Serious: No
  Sender: FDA-Public Use
  Company Number: US-ALLERGAN-1311649US

PATIENT
  Age: 81 Year
  Sex: Female

DRUGS (4)
  1. ALPHAGAN P [Suspect]
     Indication: INTRAOCULAR PRESSURE INCREASED
     Dosage: 2 GTT, BID
     Route: 047
     Dates: start: 20130619
  2. TIMOPTIC [Concomitant]
     Indication: INTRAOCULAR PRESSURE INCREASED
     Dosage: UNK
  3. LATANAPROST/TIMOLOL [Concomitant]
     Indication: INTRAOCULAR PRESSURE INCREASED
     Dosage: UNK
  4. INDERAL NOS [Concomitant]
     Indication: PRODUCT USED FOR UNKNOWN INDICATION
     Dosage: UNK

REACTIONS (3)
  - Skin tightness [Not Recovered/Not Resolved]
  - Ocular discomfort [Not Recovered/Not Resolved]
  - Eye pain [Recovered/Resolved]
